FAERS Safety Report 15600406 (Version 3)
Quarter: 2018Q4

REPORT INFORMATION
  Report Type: Spontaneous
  Country: BR (occurrence: BR)
  Receive Date: 20181109
  Receipt Date: 20181130
  Transmission Date: 20190205
  Serious: Yes (Death, Hospitalization, Other)
  Sender: FDA-Public Use
  Company Number: BR-PFIZER INC-2018457859

PATIENT
  Age: 82 Year
  Sex: Female

DRUGS (2)
  1. LORAX [Suspect]
     Active Substance: LORAZEPAM
     Indication: SLEEP DISORDER THERAPY
     Dosage: 8 MG (4 TABLETS OF 2 MG), DAILY
  2. LORAX [Suspect]
     Active Substance: LORAZEPAM
     Dosage: 4 MG (2 TABLETS OF 2 MG), DAILY

REACTIONS (9)
  - Drug dependence [Not Recovered/Not Resolved]
  - Withdrawal syndrome [Not Recovered/Not Resolved]
  - Cerebrovascular accident [Fatal]
  - Fluid intake reduced [Recovered/Resolved]
  - Aphasia [Recovered/Resolved]
  - Renal failure [Recovered/Resolved]
  - Decubitus ulcer [Recovered/Resolved]
  - Eating disorder [Recovered/Resolved]
  - Accident [Unknown]

NARRATIVE: CASE EVENT DATE: 2017
